FAERS Safety Report 8299637-1 (Version None)
Quarter: 2012Q2

REPORT INFORMATION
  Report Type: 
  Country: None (occurrence: None)
  Receive Date: 20120419
  Receipt Date: 20120416
  Transmission Date: 20120825
  Serious: Yes (Other)
  Sender: FDA-Public Use
  Company Number: ES-GLAXOSMITHKLINE-B0796527A

PATIENT
  Age: 68 Year
  Sex: Male

DRUGS (1)
  1. VENTOLIN [Suspect]
     Indication: PRODUCT USED FOR UNKNOWN INDICATION
     Dosage: 10ML SINGLE DOSE
     Route: 042
     Dates: start: 20120307, end: 20120307

REACTIONS (2)
  - TACHYCARDIA [None]
  - INCORRECT ROUTE OF DRUG ADMINISTRATION [None]
